APPROVED DRUG PRODUCT: LABETALOL HYDROCHLORIDE
Active Ingredient: LABETALOL HYDROCHLORIDE
Strength: 100MG
Dosage Form/Route: TABLET;ORAL
Application: A075113 | Product #001 | TE Code: AB
Applicant: AIPING PHARMACEUTICAL INC
Approved: Aug 4, 1998 | RLD: No | RS: No | Type: RX